FAERS Safety Report 8366811-5 (Version None)
Quarter: 2012Q2

REPORT INFORMATION
  Report Type: 
  Country: None (occurrence: None)
  Receive Date: 20120517
  Receipt Date: 20120509
  Transmission Date: 20120825
  Serious: Yes (Other)
  Sender: FDA-Public Use
  Company Number: US-ROCHE-1040242

PATIENT
  Sex: Male
  Weight: 90.8 kg

DRUGS (2)
  1. ACCUTANE [Suspect]
     Indication: ACNE CYSTIC
     Route: 065
     Dates: start: 19821001, end: 19830601
  2. ACCUTANE [Suspect]
     Dates: start: 19830801, end: 19840801

REACTIONS (3)
  - INJURY [None]
  - DEPRESSION [None]
  - COLITIS ULCERATIVE [None]
